FAERS Safety Report 22636744 (Version 1)
Quarter: 2023Q2

REPORT INFORMATION
  Report Type: Spontaneous
  Country: US (occurrence: None)
  Receive Date: 20230621
  Receipt Date: 20230621
  Transmission Date: 20230721
  Serious: Yes (Life-Threatening)
  Sender: FDA-Public Use
  Company Number: None

PATIENT
  Age: 35 Year
  Sex: Female

DRUGS (1)
  1. LEMTRADA [Suspect]
     Active Substance: ALEMTUZUMAB
     Indication: Multiple sclerosis
     Dosage: 12 MG IV INFUSION?
     Route: 050
     Dates: start: 20170628, end: 20170628

REACTIONS (5)
  - Pyrexia [None]
  - Headache [None]
  - Chills [None]
  - Respiratory rate increased [None]
  - Blood pressure increased [None]

NARRATIVE: CASE EVENT DATE: 20170628
